FAERS Safety Report 9223713 (Version 2)
Quarter: 2013Q2

REPORT INFORMATION
  Report Type: Spontaneous
  Country: US (occurrence: US)
  Receive Date: 20130410
  Receipt Date: 20130412
  Transmission Date: 20140414
  Serious: Yes (Other)
  Sender: FDA-Public Use
  Company Number: CHPA2013US005975

PATIENT
  Age: 89 Year
  Sex: Female

DRUGS (4)
  1. PREVACID 24HR 15MG [Suspect]
     Indication: ABDOMINAL PAIN
     Dosage: 15 MG, QD
     Route: 048
  2. PREDNISONE [Suspect]
     Dosage: UNK, UNK
     Dates: start: 201301
  3. TYLENOL [Concomitant]
     Dosage: 500 MG, TID
     Dates: start: 20130404
  4. XANAX [Concomitant]

REACTIONS (8)
  - Platelet count decreased [Recovered/Resolved]
  - Spinal fracture [Recovered/Resolved]
  - Fall [Recovered/Resolved]
  - Urinary tract infection [Recovered/Resolved]
  - Back pain [Unknown]
  - Dizziness [Unknown]
  - Off label use [Unknown]
  - Drug hypersensitivity [Not Recovered/Not Resolved]
